FAERS Safety Report 22088593 (Version 1)
Quarter: 2023Q1

REPORT INFORMATION
  Report Type: Spontaneous
  Country: JP (occurrence: JP)
  Receive Date: 20230313
  Receipt Date: 20230313
  Transmission Date: 20230417
  Serious: No
  Sender: FDA-Public Use
  Company Number: JP-PADAGIS-2023PAD00178

PATIENT

DRUGS (2)
  1. TESTOSTERONE CYPIONATE [Suspect]
     Active Substance: TESTOSTERONE CYPIONATE
     Indication: Micropenis
     Dosage: 25 MG PER MONTHLY ADMINISTERED 3 TIMES
     Route: 030
  2. TESTOSTERONE CYPIONATE [Suspect]
     Active Substance: TESTOSTERONE CYPIONATE
     Indication: Testicular retraction
     Dosage: 125 MG
     Route: 065

REACTIONS (1)
  - Oligospermia [Unknown]
